FAERS Safety Report 21386350 (Version 1)
Quarter: 2022Q3

REPORT INFORMATION
  Report Type: Report from Study
  Country: US (occurrence: US)
  Receive Date: 20220928
  Receipt Date: 20220928
  Transmission Date: 20221027
  Serious: Yes (Other)
  Sender: FDA-Public Use
  Company Number: US-BRISTOL-MYERS SQUIBB COMPANY-2022-111995

PATIENT
  Age: 75 Year
  Sex: Female
  Weight: 90.71 kg

DRUGS (2)
  1. REVLIMID [Suspect]
     Active Substance: LENALIDOMIDE
     Indication: Plasma cell myeloma
     Dosage: DAILY 28 DAYS
     Route: 048
     Dates: start: 20210309
  2. REVLIMID [Suspect]
     Active Substance: LENALIDOMIDE
     Indication: Hepatic function abnormal

REACTIONS (2)
  - COVID-19 [Recovering/Resolving]
  - Arthropathy [Recovering/Resolving]
